FAERS Safety Report 7084546-6 (Version None)
Quarter: 2010Q4

REPORT INFORMATION
  Report Type: 
  Country: None (occurrence: None)
  Receive Date: 20101104
  Receipt Date: 20101029
  Transmission Date: 20110411
  Serious: Yes (Other)
  Sender: FDA-Public Use
  Company Number: US-PFIZER INC-2010125754

PATIENT
  Sex: Male
  Weight: 66 kg

DRUGS (9)
  1. CHANTIX [Suspect]
     Indication: SMOKING CESSATION THERAPY
     Dosage: 0.5 MG, 1X/DAY
     Route: 048
     Dates: start: 20100929
  2. LISINOPRIL [Concomitant]
     Indication: HYPERTENSION
     Dosage: 10 MG, 1X/DAY
     Route: 048
     Dates: start: 20100101
  3. SIMVASTATIN [Concomitant]
     Indication: BLOOD CHOLESTEROL INCREASED
     Dosage: 40 MG, 1X/DAY
     Route: 048
     Dates: start: 20100101
  4. CETIRIZINE [Concomitant]
     Indication: HYPERSENSITIVITY
     Dosage: 10 MG, 1X/DAY
     Route: 048
     Dates: start: 20100101
  5. NABUMETONE [Concomitant]
     Indication: BACK PAIN
     Dosage: 750 MG, 2X/DAY
     Route: 048
     Dates: start: 20100101
  6. NABUMETONE [Concomitant]
     Indication: NECK PAIN
  7. VITAMIN D [Concomitant]
     Indication: VITAMIN SUPPLEMENTATION
     Dosage: 1000 IU, 1X/DAY
     Route: 048
     Dates: start: 20100801
  8. IRON/ VITAMIN B NOS [Concomitant]
     Dosage: UNK
  9. LOVAZA [Concomitant]
     Dosage: 1000 MG, 1X/DAY

REACTIONS (2)
  - DEPRESSION [None]
  - NERVOUSNESS [None]
